FAERS Safety Report 8177873-2 (Version None)
Quarter: 2012Q1

REPORT INFORMATION
  Report Type: 
  Country: None (occurrence: None)
  Receive Date: 20120126
  Receipt Date: 20111108
  Transmission Date: 20120608
  Serious: No
  Sender: FDA-Public Use
  Company Number: PHEH2011US05687

PATIENT
  Age: 23 Year
  Sex: Female
  Weight: 78 kg

DRUGS (10)
  1. FELBATOL [Concomitant]
  2. DEPO-PROVERA [Concomitant]
  3. ATIVAN [Concomitant]
  4. VITAMINS NOS [Concomitant]
  5. AFINITOR [Suspect]
     Indication: TUBEROUS SCLEROSIS
     Dosage: 5 MG, DAILY, ORAL : 7.5 MG
     Route: 048
     Dates: start: 20110902
  6. AFINITOR [Suspect]
     Indication: ASTROCYTOMA MALIGNANT
     Dosage: 5 MG, DAILY, ORAL : 7.5 MG
     Route: 048
     Dates: start: 20110902
  7. PAXIL [Concomitant]
  8. VIMPAT [Concomitant]
  9. MULTIVITAMINS (ASCORBIC ACID, ERGOCALCIFEROL, FOLIC ACID, NICOTINAMIDE [Concomitant]
  10. TOBRADEX [Concomitant]

REACTIONS (7)
  - ABDOMINAL DISCOMFORT [None]
  - ABDOMINAL PAIN UPPER [None]
  - LABORATORY TEST ABNORMAL [None]
  - STOMATITIS [None]
  - ALOPECIA [None]
  - NAUSEA [None]
  - WEIGHT DECREASED [None]
